FAERS Safety Report 5029725-4 (Version None)
Quarter: 2006Q2

REPORT INFORMATION
  Report Type: 
  Country: None (occurrence: None)
  Receive Date: 20060614
  Receipt Date: 20060607
  Transmission Date: 20061013
  Serious: No
  Sender: FDA-Public Use
  Company Number: 06H-163-0308414-00

PATIENT
  Age: 91 Year
  Sex: Female
  Weight: 45.3597 kg

DRUGS (2)
  1. SODIUM CHLORIDE [Suspect]
     Dosage: 2.3 ML/HR, CONTINOUS
     Dates: start: 20060606
  2. INSULIN [Suspect]
     Indication: BLOOD GLUCOSE INCREASED
     Dosage: 2.3 ML/HR CONTINUOUS INFUSION, INTRAVENOUS
     Route: 042
     Dates: start: 20060606, end: 20060606

REACTIONS (4)
  - DEVICE MALFUNCTION [None]
  - HYPOGLYCAEMIA [None]
  - HYPOTENSION [None]
  - INCORRECT DOSE ADMINISTERED [None]
